FAERS Safety Report 7654423-8 (Version None)
Quarter: 2011Q3

REPORT INFORMATION
  Report Type: 
  Country: None (occurrence: None)
  Receive Date: 20110803
  Receipt Date: 20110802
  Transmission Date: 20111222
  Serious: Yes (Hospitalization, Other)
  Sender: FDA-Public Use
  Company Number: JP-ABBOTT-08P-087-0490069-00

PATIENT
  Sex: Male
  Weight: 65 kg

DRUGS (13)
  1. BUCILLAMINE [Concomitant]
     Dates: end: 20081105
  2. NIZATIDINE [Concomitant]
     Dates: end: 20081105
  3. STEROID [Concomitant]
     Indication: RHEUMATOID ARTHRITIS
     Route: 048
     Dates: start: 20071213
  4. HUMIRA [Suspect]
     Indication: RHEUMATOID ARTHRITIS
     Route: 058
     Dates: start: 20080924, end: 20081105
  5. PRONASE [Concomitant]
     Indication: RHEUMATOID ARTHRITIS
     Dates: end: 20081105
  6. BUCILLAMINE [Concomitant]
     Indication: RHEUMATOID ARTHRITIS
     Route: 048
  7. EXTRACT OF INFLAMMATORY RABBIT SKIN INOCULATED BY VACCINIA VIRUS [Concomitant]
     Indication: RHEUMATOID ARTHRITIS
     Dates: end: 20081105
  8. EXTRACT OF INFLAMMATORY RABBIT SKIN INOCULATED BY VACCINIA VIRUS [Concomitant]
     Indication: NEURALGIA
     Route: 058
     Dates: start: 20080417
  9. INDOMETACIN FARNESIL [Concomitant]
     Dates: end: 20081105
  10. NIZATIDINE [Concomitant]
     Indication: GASTRITIS PROPHYLAXIS
     Route: 048
     Dates: start: 20080501
  11. PREDNISOLONE [Concomitant]
     Indication: RHEUMATOID ARTHRITIS
     Route: 048
     Dates: end: 20081105
  12. PRONASE [Concomitant]
     Indication: ANTIINFLAMMATORY THERAPY
     Route: 048
     Dates: start: 20080501
  13. INDOMETACIN FARNESIL [Concomitant]
     Indication: RHEUMATOID ARTHRITIS
     Route: 048
     Dates: start: 20080522

REACTIONS (2)
  - DYSPNOEA [None]
  - INTERSTITIAL LUNG DISEASE [None]
